FAERS Safety Report 8118517-5 (Version None)
Quarter: 2012Q1

REPORT INFORMATION
  Report Type: 
  Country: None (occurrence: None)
  Receive Date: 20120201
  Receipt Date: 20120120
  Transmission Date: 20120608
  Serious: Yes (Hospitalization)
  Sender: FDA-Public Use
  Company Number: FK201200196

PATIENT
  Sex: Male

DRUGS (3)
  1. NEULASTA [Suspect]
  2. OXALIPLATIN (MANUFACTURER UNKNOWN) (OXALIPLATIN) (OXALIPLATIN) [Suspect]
     Indication: COLORECTAL CANCER
     Dates: start: 20111215
  3. FLUOROURACIL [Suspect]
     Indication: COLORECTAL CANCER
     Dates: start: 20111215

REACTIONS (3)
  - DIZZINESS [None]
  - SYNCOPE [None]
  - ARRHYTHMIA [None]
